FAERS Safety Report 25507061 (Version 1)
Quarter: 2025Q3

REPORT INFORMATION
  Report Type: Spontaneous
  Country: CA (occurrence: CA)
  Receive Date: 20250702
  Receipt Date: 20250702
  Transmission Date: 20251020
  Serious: Yes (Hospitalization, Other)
  Sender: JOHNSON AND JOHNSON
  Company Number: CA-JNJFOC-20250633005

PATIENT
  Sex: Male

DRUGS (3)
  1. INVEGA SUSTENNA [Suspect]
     Active Substance: PALIPERIDONE PALMITATE
     Indication: Schizophrenia
     Route: 030
  2. INVEGA SUSTENNA [Suspect]
     Active Substance: PALIPERIDONE PALMITATE
  3. INVEGA SUSTENNA [Suspect]
     Active Substance: PALIPERIDONE PALMITATE

REACTIONS (9)
  - Loss of consciousness [Unknown]
  - Cardiac arrest [Unknown]
  - Throat irritation [Unknown]
  - Structural brain disorder [Unknown]
  - Oropharyngeal pain [Unknown]
  - Dissociative identity disorder [Unknown]
  - Injection site reaction [Unknown]
  - Behaviour disorder [Unknown]
  - Disorganised speech [Unknown]
